FAERS Safety Report 19450088 (Version 1)
Quarter: 2021Q2

REPORT INFORMATION
  Report Type: Spontaneous
  Country: US (occurrence: US)
  Receive Date: 20210622
  Receipt Date: 20210622
  Transmission Date: 20210717
  Serious: Yes (Other)
  Sender: FDA-Public Use
  Company Number: US-ALLERGAN-2123155US

PATIENT
  Sex: Male
  Weight: 104.78 kg

DRUGS (1)
  1. RISEDRONATE SODIUM ? BP [Suspect]
     Active Substance: RISEDRONATE SODIUM
     Indication: BONE DENSITY DECREASED
     Dosage: 35 MG, Q WEEK
     Dates: start: 20190520, end: 201906

REACTIONS (11)
  - Dizziness [Unknown]
  - Pain in jaw [Recovered/Resolved]
  - Nocturia [Not Recovered/Not Resolved]
  - Constipation [Recovered/Resolved]
  - Blindness [Unknown]
  - Feeling abnormal [Unknown]
  - Sleep disorder [Unknown]
  - Arthralgia [Not Recovered/Not Resolved]
  - Gait inability [Unknown]
  - Headache [Unknown]
  - Loose tooth [Recovered/Resolved]

NARRATIVE: CASE EVENT DATE: 2019
